FAERS Safety Report 4581776-X (Version None)
Quarter: 2005Q1

REPORT INFORMATION
  Report Type: 
  Country: None (occurrence: None)
  Receive Date: 20050214
  Receipt Date: 20040302
  Transmission Date: 20050727
  Serious: No
  Sender: FDA-Public Use
  Company Number: US-GLAXOSMITHKLINE-A0500709A

PATIENT
  Sex: Male

DRUGS (2)
  1. LAMICTAL [Suspect]
     Indication: ILL-DEFINED DISORDER
     Dosage: 175MG UNKNOWN
     Route: 048
     Dates: start: 20020901, end: 20040302
  2. DEPAKOTE [Concomitant]

REACTIONS (2)
  - OROPHARYNGEAL SWELLING [None]
  - SWOLLEN TONGUE [None]
